FAERS Safety Report 5651879-7 (Version None)
Quarter: 2008Q1

REPORT INFORMATION
  Report Type: 
  Country: None (occurrence: None)
  Receive Date: 20080304
  Receipt Date: 20080227
  Transmission Date: 20080703
  Serious: Yes (Other)
  Sender: FDA-Public Use
  Company Number: 017901

PATIENT
  Age: 31 Year
  Sex: Female

DRUGS (2)
  1. CLARAVIS [Suspect]
     Dosage: 40 MG, QD, ORAL; 80 MG, QD, ORAL
     Route: 048
     Dates: start: 20070516, end: 20070615
  2. CLARAVIS [Suspect]
     Dosage: 40 MG, QD, ORAL; 80 MG, QD, ORAL
     Route: 048
     Dates: start: 20070615, end: 20070828

REACTIONS (5)
  - ABORTION INDUCED [None]
  - DRUG EXPOSURE DURING PREGNANCY [None]
  - MATERNAL DRUGS AFFECTING FOETUS [None]
  - PREGNANCY WITH CONTRACEPTIVE DEVICE [None]
  - UNINTENDED PREGNANCY [None]
